FAERS Safety Report 24173954 (Version 2)
Quarter: 2024Q4

REPORT INFORMATION
  Report Type: Report from Study
  Country: US (occurrence: US)
  Receive Date: 20240805
  Receipt Date: 20241008
  Transmission Date: 20250115
  Serious: Yes (Death, Disabling)
  Sender: BAYER
  Company Number: US-BAYER-2024A112327

PATIENT
  Age: 73 Year
  Sex: Female

DRUGS (3)
  1. ADEMPAS [Suspect]
     Active Substance: RIOCIGUAT
     Indication: Pulmonary arterial hypertension
  2. ADEMPAS [Suspect]
     Active Substance: RIOCIGUAT
     Indication: Pulmonary arterial hypertension
     Dosage: 2 MG, TID
     Dates: start: 202309
  3. OPSUMIT [Concomitant]
     Active Substance: MACITENTAN

REACTIONS (2)
  - Death [Fatal]
  - Disability [None]

NARRATIVE: CASE EVENT DATE: 20240730
